FAERS Safety Report 12653512 (Version 2)
Quarter: 2016Q3

REPORT INFORMATION
  Report Type: Spontaneous
  Country: JP (occurrence: JP)
  Receive Date: 20160815
  Receipt Date: 20160915
  Transmission Date: 20161109
  Serious: No
  Sender: FDA-Public Use
  Company Number: JP-009507513-1608JPN006533

PATIENT
  Age: 34 Year
  Sex: Female

DRUGS (4)
  1. KAMI-SHOYO-SAN [Concomitant]
     Active Substance: HERBALS
     Dosage: 2.5 G, TID
     Route: 048
     Dates: start: 20160602, end: 20160705
  2. KAMI-SHOYO-SAN [Concomitant]
     Active Substance: HERBALS
     Dosage: 2.5 G, BID
     Route: 048
     Dates: start: 20160812
  3. BELSOMRA [Suspect]
     Active Substance: SUVOREXANT
     Indication: INSOMNIA
     Dosage: 15 MG, QD
     Route: 048
     Dates: start: 20160602, end: 20160619
  4. BELSOMRA [Suspect]
     Active Substance: SUVOREXANT
     Indication: INSOMNIA
     Dosage: 20 MG, QD
     Route: 048
     Dates: start: 20160620, end: 20160705

REACTIONS (16)
  - Tinnitus [Unknown]
  - Headache [Unknown]
  - Oedema [Unknown]
  - Nausea [Unknown]
  - Somnambulism [Recovered/Resolved]
  - Hallucination [Unknown]
  - Photophobia [Unknown]
  - Tremor [Unknown]
  - Hyperhidrosis [Unknown]
  - Joint ankylosis [Unknown]
  - Anxiety [Unknown]
  - Fear [Unknown]
  - Somnolence [Unknown]
  - Weight increased [Unknown]
  - Palpitations [Unknown]
  - Hyperventilation [Unknown]

NARRATIVE: CASE EVENT DATE: 20160608
